FAERS Safety Report 20840606 (Version 3)
Quarter: 2022Q2

REPORT INFORMATION
  Report Type: Spontaneous
  Country: US (occurrence: US)
  Receive Date: 20220517
  Receipt Date: 20220531
  Transmission Date: 20220721
  Serious: Yes (Other)
  Sender: FDA-Public Use
  Company Number: US-AMGEN-USASP2022078531

PATIENT
  Sex: Female

DRUGS (1)
  1. PROLIA [Suspect]
     Active Substance: DENOSUMAB
     Indication: Osteoporosis
     Dosage: UNK
     Route: 065

REACTIONS (5)
  - Lumbar vertebral fracture [Unknown]
  - Cervical vertebral fracture [Unknown]
  - Osteoarthritis [Unknown]
  - Myalgia [Recovered/Resolved]
  - Bone pain [Recovered/Resolved]
